FAERS Safety Report 6748797-X (Version None)
Quarter: 2010Q2

REPORT INFORMATION
  Report Type: 
  Country: None (occurrence: None)
  Receive Date: 20100601
  Receipt Date: 20100519
  Transmission Date: 20101027
  Serious: Yes (Other)
  Sender: FDA-Public Use
  Company Number: PHHY2010JP24829

PATIENT
  Sex: Male
  Weight: 82 kg

DRUGS (11)
  1. RASILEZ [Suspect]
     Indication: HYPERTENSION
     Dosage: 150 MG DAILY
     Route: 048
     Dates: start: 20091222, end: 20100410
  2. AMLODIN [Suspect]
     Dosage: 2.5 MG
     Route: 048
     Dates: start: 20040603, end: 20050331
  3. AMLODIN [Suspect]
     Dosage: 5 MG DAILY
     Dates: start: 20050401, end: 20100112
  4. AMLODIN [Suspect]
     Dosage: 10 MG DAILY
     Route: 048
     Dates: start: 20100113, end: 20100304
  5. CALBLOCK [Suspect]
     Dosage: 8 MG
     Route: 048
     Dates: start: 20100305, end: 20100311
  6. CALBLOCK [Suspect]
     Dosage: 10 MG
     Route: 048
     Dates: start: 20100312
  7. OLMESARTAN MEDOXOMIL [Suspect]
     Indication: BLOOD PRESSURE INCREASED
     Dosage: 20 MG
     Route: 048
     Dates: start: 20091201, end: 20091221
  8. CELECTOL [Concomitant]
     Dosage: 200 MG
     Route: 048
     Dates: start: 20090914, end: 20100402
  9. DOXAZOSIN MESYLATE [Concomitant]
     Dosage: 0.5 MG
     Route: 048
     Dates: start: 20100415
  10. DOXAZOSIN MESYLATE [Concomitant]
     Dosage: 1 MG
     Route: 048
  11. INSULIN [Concomitant]
     Indication: DIABETES MELLITUS

REACTIONS (7)
  - ANGIOEDEMA [None]
  - BLOOD PRESSURE SYSTOLIC INCREASED [None]
  - DRUG EFFECT DECREASED [None]
  - GAIT DISTURBANCE [None]
  - OEDEMA PERIPHERAL [None]
  - PAIN [None]
  - SENSORY DISTURBANCE [None]
